FAERS Safety Report 15952444 (Version 4)
Quarter: 2019Q4

REPORT INFORMATION
  Report Type: Spontaneous
  Country: US (occurrence: US)
  Receive Date: 20190212
  Receipt Date: 20191003
  Transmission Date: 20200122
  Serious: No
  Sender: FDA-Public Use
  Company Number: US-PFIZER INC-2019060561

PATIENT
  Age: 50 Year
  Sex: Female

DRUGS (1)
  1. XELJANZ XR [Suspect]
     Active Substance: TOFACITINIB CITRATE
     Dosage: 11 MG, DAILY
     Route: 048
     Dates: start: 20181001

REACTIONS (5)
  - Condition aggravated [Not Recovered/Not Resolved]
  - Back pain [Unknown]
  - Emotional disorder [Unknown]
  - Inflammation [Unknown]
  - Weight increased [Unknown]
